FAERS Safety Report 9280191 (Version 3)
Quarter: 2013Q3

REPORT INFORMATION
  Report Type: Report from Study
  Country: US (occurrence: US)
  Receive Date: 20130509
  Receipt Date: 20130725
  Transmission Date: 20140515
  Serious: No
  Sender: FDA-Public Use
  Company Number: US-VERTEX PHARMACEUTICALS INC-2013-005827

PATIENT
  Age: 59 Year
  Sex: Male
  Weight: 78 kg

DRUGS (18)
  1. VX-950 (TELAPREVIR) [Suspect]
     Indication: HEPATITIS C
     Dosage: UNK
     Route: 048
     Dates: start: 20130103, end: 20130330
  2. RIBAVIRIN [Suspect]
     Indication: HEPATITIS C
     Dosage: UNK
     Dates: start: 20130103
  3. PEGINTRON [Suspect]
     Indication: HEPATITIS C
     Dosage: UNK
     Dates: start: 20130103
  4. CALCIUM + VITAMIN D [Concomitant]
  5. ETODOLAC [Concomitant]
  6. FISH OIL [Concomitant]
  7. GABAPENTIN [Concomitant]
  8. VITAMIN C [Concomitant]
  9. GLUCOSAMIN [Concomitant]
  10. HYDROCORTISONE [Concomitant]
     Route: 054
  11. TYLENOL [Concomitant]
  12. IBUPROFEN [Concomitant]
  13. MAGNESIUM [Concomitant]
     Dosage: 250 MG
  14. MONTELUKAST [Concomitant]
  15. PAROXETINE [Concomitant]
  16. SYNTHROID [Concomitant]
  17. COQ10 [Concomitant]
  18. MSM [Concomitant]

REACTIONS (3)
  - White blood cell count decreased [Not Recovered/Not Resolved]
  - Tongue ulceration [Not Recovered/Not Resolved]
  - Alopecia [Recovered/Resolved]
